FAERS Safety Report 12736436 (Version 2)
Quarter: 2016Q3

REPORT INFORMATION
  Report Type: Spontaneous
  Country: US (occurrence: US)
  Receive Date: 20160912
  Receipt Date: 20160929
  Transmission Date: 20161109
  Serious: No
  Sender: FDA-Public Use
  Company Number: US-GLAXOSMITHKLINE-US2016131471

PATIENT
  Age: 57 Year
  Sex: Female
  Weight: 97.51 kg

DRUGS (3)
  1. MEDROL [Concomitant]
     Active Substance: METHYLPREDNISOLONE
  2. XOLAIR [Concomitant]
     Active Substance: OMALIZUMAB
  3. BREO ELLIPTA [Suspect]
     Active Substance: FLUTICASONE FUROATE\VILANTEROL TRIFENATATE
     Indication: ASTHMA
     Dosage: 1 PUFF(S), QD
     Dates: start: 20160907, end: 20160908

REACTIONS (3)
  - Dizziness [Unknown]
  - Presyncope [Unknown]
  - Formication [Unknown]

NARRATIVE: CASE EVENT DATE: 20160907
